FAERS Safety Report 20603460 (Version 1)
Quarter: 2022Q1

REPORT INFORMATION
  Report Type: Report from Study
  Country: TR (occurrence: TR)
  Receive Date: 20220316
  Receipt Date: 20220316
  Transmission Date: 20220423
  Serious: Yes (Death, Other)
  Sender: FDA-Public Use
  Company Number: TR-AMGEN-TURNI2022046233

PATIENT
  Age: 65 Year
  Sex: Male

DRUGS (1)
  1. AMG-510 [Suspect]
     Active Substance: AMG-510
     Indication: Non-small cell lung cancer metastatic
     Dosage: UNK
     Route: 065
     Dates: start: 20211119, end: 20220120

REACTIONS (2)
  - Death [Fatal]
  - Adverse drug reaction [Unknown]

NARRATIVE: CASE EVENT DATE: 20220215
